FAERS Safety Report 8621936-1 (Version None)
Quarter: 2012Q3

REPORT INFORMATION
  Report Type: 
  Country: None (occurrence: None)
  Receive Date: 20120822
  Receipt Date: 20120822
  Transmission Date: 20120928
  Serious: Yes (Hospitalization, Other)
  Sender: FDA-Public Use
  Company Number: None

PATIENT
  Sex: Male
  Weight: 90 kg

DRUGS (13)
  1. TESTOSTERONE CYPIONATE [Concomitant]
  2. VALTREX [Concomitant]
  3. DOXYCYCLINE [Concomitant]
  4. NANDROLONE [Concomitant]
  5. KALETRA [Concomitant]
  6. REYATAZ [Concomitant]
  7. TOPROL-XL [Concomitant]
  8. LOSARTAN POTASSIUM [Concomitant]
  9. PROVIGIL [Concomitant]
  10. ULORIC [Concomitant]
  11. ZANTAC [Concomitant]
  12. EGRIFTA [Suspect]
     Indication: LIPODYSTROPHY ACQUIRED
     Dosage: 2 MG DAILY SUBCUTANEOUS
     Route: 058
     Dates: start: 20120411, end: 20120501
  13. EGRIFTA [Suspect]
     Indication: LIPODYSTROPHY ACQUIRED
     Dosage: 2 MG DAILY SUBCUTANEOUS
     Route: 058
     Dates: start: 20110223, end: 20110607

REACTIONS (1)
  - ADENOCARCINOMA [None]
